FAERS Safety Report 4599703-8 (Version None)
Quarter: 2005Q1

REPORT INFORMATION
  Report Type: 
  Country: None (occurrence: None)
  Receive Date: 20050304
  Receipt Date: 20050304
  Transmission Date: 20050727
  Serious: Yes (Death)
  Sender: FDA-Public Use
  Company Number: None

PATIENT
  Age: 58 Year
  Sex: Male
  Weight: 64.8644 kg

DRUGS (3)
  1. CARBOPLATIN [Suspect]
     Indication: LUNG NEOPLASM MALIGNANT
     Dosage: IV 780 MG
     Route: 042
     Dates: start: 20050221
  2. TAXOL [Suspect]
     Dosage: IV 350 MG
     Route: 042
  3. FETANYL PATCH [Concomitant]

REACTIONS (4)
  - COUGH [None]
  - HAEMOPTYSIS [None]
  - NEOPLASM PROGRESSION [None]
  - TRACHEAL DISORDER [None]
